FAERS Safety Report 12563611 (Version 2)
Quarter: 2016Q3

REPORT INFORMATION
  Report Type: Report from Study
  Country: FR (occurrence: FR)
  Receive Date: 20160715
  Receipt Date: 20160909
  Transmission Date: 20161109
  Serious: Yes (Life-Threatening, Hospitalization, Other)
  Sender: FDA-Public Use
  Company Number: FR-ROCHE-1610469

PATIENT
  Age: 48 Year
  Sex: Female
  Weight: 84 kg

DRUGS (26)
  1. MIFLONIL [Concomitant]
     Active Substance: BUDESONIDE
     Route: 065
     Dates: start: 2013
  2. ONDANSETRON [Concomitant]
     Active Substance: ONDANSETRON
     Indication: PREMEDICATION
     Route: 065
     Dates: start: 20150527, end: 20150708
  3. AMOXICILLINE [Concomitant]
     Active Substance: AMOXICILLIN
     Indication: BRONCHITIS
     Route: 065
     Dates: start: 201507, end: 201507
  4. VEINOTONIC II [Concomitant]
     Indication: HAEMORRHOIDS
     Route: 065
     Dates: start: 20150615, end: 20150617
  5. TRAMADOL. [Concomitant]
     Active Substance: TRAMADOL
     Indication: HEPATIC PAIN
     Route: 065
     Dates: start: 20150529, end: 20150530
  6. LEVOFOLINATE [Concomitant]
     Active Substance: LEVOLEUCOVORIN CALCIUM
     Route: 065
     Dates: start: 20150708
  7. BEVACIZUMAB [Suspect]
     Active Substance: BEVACIZUMAB
     Indication: COLORECTAL CANCER METASTATIC
     Dosage: LAST DOSE PRIOR TO SAE ARTERIAL AND VENOUS THROMBOSIS: 08/JUL/2015
     Route: 042
     Dates: start: 20150527
  8. MOPRAL [Concomitant]
     Active Substance: OMEPRAZOLE SODIUM
     Indication: LACTOSE INTOLERANCE
     Route: 065
     Dates: start: 20150624, end: 20150719
  9. OXYNORMORO [Concomitant]
     Active Substance: OXYCODONE
     Indication: HEPATIC PAIN
     Route: 065
     Dates: start: 20150502, end: 20150503
  10. EMEND [Concomitant]
     Active Substance: APREPITANT
     Indication: PREMEDICATION
     Route: 065
     Dates: start: 20150527, end: 20150708
  11. TITANOREINE (FRANCE) [Concomitant]
     Indication: HAEMORRHOIDS
     Dosage: 6
     Route: 065
     Dates: start: 20150615, end: 20150617
  12. PERFALGAN [Concomitant]
     Active Substance: ACETAMINOPHEN
     Indication: GENERAL PHYSICAL HEALTH DETERIORATION
     Route: 065
     Dates: start: 20150807, end: 201508
  13. FLUOROURACIL. [Suspect]
     Active Substance: FLUOROURACIL
     Indication: COLORECTAL CANCER METASTATIC
     Dosage: LAST DOSE PRIOR TO SAE ARTERIAL AND VENOUS THROMBOSIS: 08/JUL/2015?LAST DOSE:3550 MG
     Route: 042
     Dates: start: 20150527
  14. FLUOROURACIL. [Suspect]
     Active Substance: FLUOROURACIL
     Dosage: LAST DOSE PRIOR TO SAE ARTERIAL AND VENOUS THROMBOSIS: 10/JUL/2015?PLANNED DOSE 4450 MG
     Route: 042
     Dates: start: 20150708
  15. DIFFU K [Concomitant]
     Active Substance: POTASSIUM CHLORIDE
     Indication: HYPOKALAEMIA
     Route: 065
     Dates: start: 201501, end: 201501
  16. CETRIZINE [Concomitant]
     Active Substance: CETIRIZINE HYDROCHLORIDE
     Route: 065
     Dates: start: 2000
  17. FORADIL [Concomitant]
     Active Substance: FORMOTEROL FUMARATE
     Route: 065
     Dates: start: 2013
  18. MONTELUKAST [Concomitant]
     Active Substance: MONTELUKAST SODIUM
     Route: 065
     Dates: start: 2013
  19. PREDNISOLONE. [Concomitant]
     Active Substance: PREDNISOLONE
     Indication: PREMEDICATION
     Route: 065
     Dates: start: 20150527, end: 20150708
  20. FLUOROURACIL. [Suspect]
     Active Substance: FLUOROURACIL
     Dosage: LAST DOSE PRIOR TO SAE THROMBOSIS: 08/JUL/2015
     Route: 040
     Dates: start: 20150708
  21. CALCIUM LEVOFOLINATE [Suspect]
     Active Substance: LEVOLEUCOVORIN CALCIUM
     Indication: COLORECTAL CANCER METASTATIC
     Dosage: LAST DOSE PRIOR TO SAE ARTERIAL AND VENOUS THROMBOSIS: 08/JUL/2015
     Route: 042
     Dates: start: 20150527
  22. ONDANSETRON [Concomitant]
     Active Substance: ONDANSETRON
     Indication: PROPHYLAXIS
  23. DIFFU K [Concomitant]
     Active Substance: POTASSIUM CHLORIDE
     Route: 065
     Dates: start: 20150715, end: 20150728
  24. OXALIPLATIN. [Suspect]
     Active Substance: OXALIPLATIN
     Indication: COLORECTAL CANCER METASTATIC
     Dosage: LAST DOSE PRIOR TO SAE ARTERIAL AND VENOUS THROMBOSIS: 08/JUL/2015?LAST DOSE :125 MG
     Route: 042
     Dates: start: 20150527
  25. EMEND [Concomitant]
     Active Substance: APREPITANT
     Indication: PROPHYLAXIS
  26. PREDNISOLONE. [Concomitant]
     Active Substance: PREDNISOLONE
     Indication: PROPHYLAXIS

REACTIONS (2)
  - Nasal dryness [Recovering/Resolving]
  - Thrombosis [Recovered/Resolved]

NARRATIVE: CASE EVENT DATE: 201507
